FAERS Safety Report 9039142 (Version 1)
Quarter: 2013Q1

REPORT INFORMATION
  Report Type: Spontaneous
  Country: US (occurrence: None)
  Receive Date: 20130122
  Receipt Date: 20130122
  Transmission Date: 20140127
  Serious: No
  Sender: FDA-Public Use
  Company Number: None

PATIENT
  Sex: Male
  Weight: 79 kg

DRUGS (1)
  1. ALFA 2 INTERFERON 2B [Suspect]
     Dates: end: 20130104

REACTIONS (1)
  - Blood triglycerides increased [None]
